FAERS Safety Report 8267458-1 (Version None)
Quarter: 2012Q2

REPORT INFORMATION
  Report Type: 
  Country: None (occurrence: None)
  Receive Date: 20120405
  Receipt Date: 20120405
  Transmission Date: 20120825
  Serious: Yes (Hospitalization)
  Sender: FDA-Public Use
  Company Number: None

PATIENT
  Age: 76 Year
  Sex: Male
  Weight: 92 kg

DRUGS (11)
  1. COUMADIN [Suspect]
     Indication: PULMONARY EMBOLISM
     Dosage: PO RECENT
     Route: 048
  2. COUMADIN [Suspect]
     Indication: DEEP VEIN THROMBOSIS POSTOPERATIVE
     Dosage: PO RECENT
     Route: 048
  3. UROXATRAL [Concomitant]
  4. OMEPRAZOLE [Concomitant]
  5. KEFLEX [Concomitant]
  6. MYCOPHENOLATE MOFETIL (CELLCEPT) [Concomitant]
  7. CITRALOL [Concomitant]
  8. LOVENOX [Suspect]
     Indication: DEEP VEIN THROMBOSIS POSTOPERATIVE
     Dosage: RECENT
  9. LOVENOX [Suspect]
     Indication: PULMONARY EMBOLISM
     Dosage: RECENT
  10. ASTELIN [Concomitant]
  11. PINASTERIDE [Concomitant]

REACTIONS (3)
  - HAEMORRHAGE [None]
  - THROMBOSIS [None]
  - HAEMATURIA [None]
